FAERS Safety Report 23899059 (Version 1)
Quarter: 2024Q2

REPORT INFORMATION
  Report Type: Spontaneous
  Country: US (occurrence: US)
  Receive Date: 20240525
  Receipt Date: 20240525
  Transmission Date: 20240716
  Serious: No
  Sender: FDA-Public Use
  Company Number: US-TEVA-VS-3198419

PATIENT
  Age: 34 Year
  Sex: Female

DRUGS (1)
  1. TREPROSTINIL [Suspect]
     Active Substance: TREPROSTINIL
     Indication: Product used for unknown indication
     Dosage: DOSAGE: 10 MG/ML 30 NANOGRAMS/KG/MIN, 10MG/ML
     Route: 065
     Dates: end: 20240113

REACTIONS (1)
  - Administration site infection [Unknown]
